FAERS Safety Report 15455625 (Version 2)
Quarter: 2019Q1

REPORT INFORMATION
  Report Type: Spontaneous
  Country: ES (occurrence: ES)
  Receive Date: 20181002
  Receipt Date: 20190311
  Transmission Date: 20190417
  Serious: Yes (Hospitalization, Other)
  Sender: FDA-Public Use
  Company Number: ES-MYLANLABS-2018M1071111

PATIENT
  Age: 57 Year
  Sex: Male

DRUGS (4)
  1. MYCOPHENOLATE MOFETIL. [Suspect]
     Active Substance: MYCOPHENOLATE MOFETIL
     Indication: RENAL TRANSPLANT
  2. PREDNISONE. [Suspect]
     Active Substance: PREDNISONE
     Indication: RENAL TRANSPLANT
     Dosage: 5 MG, QD
     Route: 065
  3. PREDNISONE. [Suspect]
     Active Substance: PREDNISONE
     Indication: IMMUNOSUPPRESSANT DRUG THERAPY
     Dosage: UNK
  4. MYCOPHENOLATE MOFETIL. [Suspect]
     Active Substance: MYCOPHENOLATE MOFETIL
     Indication: IMMUNOSUPPRESSANT DRUG THERAPY
     Dosage: UNK

REACTIONS (10)
  - Gastrointestinal hypermotility [Recovering/Resolving]
  - Cryptosporidiosis infection [Recovering/Resolving]
  - Weight decreased [Recovering/Resolving]
  - Renal impairment [Recovered/Resolved]
  - Pyrexia [Recovering/Resolving]
  - Malnutrition [Recovering/Resolving]
  - Abdominal discomfort [Recovering/Resolving]
  - Acidosis [Recovering/Resolving]
  - Metabolic acidosis [Recovering/Resolving]
  - Diarrhoea [Recovered/Resolved]
